FAERS Safety Report 8187849-7 (Version None)
Quarter: 2012Q1

REPORT INFORMATION
  Report Type: 
  Country: None (occurrence: None)
  Receive Date: 20120306
  Receipt Date: 20120228
  Transmission Date: 20120608
  Serious: Yes (Hospitalization)
  Sender: FDA-Public Use
  Company Number: US-UCBSA-052385

PATIENT
  Age: 32 Year
  Sex: Male
  Weight: 119.7 kg

DRUGS (23)
  1. CIMZIA [Suspect]
     Indication: CROHN'S DISEASE
     Route: 058
     Dates: start: 20120206
  2. OXYCODONE HCL [Concomitant]
     Dosage: 10 MG ,EVERY 6 HOURS AS NECESSARY
  3. FLAGYL [Concomitant]
  4. CIPRO [Concomitant]
  5. ONDANSETRON [Concomitant]
     Dosage: 4 MG Q6
  6. METHOTREXATE [Concomitant]
     Indication: CROHN'S DISEASE
     Dates: start: 20110401
  7. VITAMIN D SUPPLEMENT [Concomitant]
     Indication: CROHN'S DISEASE
  8. CALCIUM SUPPLEMENT [Concomitant]
     Indication: CROHN'S DISEASE
  9. FOLIC ACID [Concomitant]
     Dosage: TOTAL DALY DOSE : 1 MG
  10. AUGMENTIN '125' [Concomitant]
     Indication: CROHN'S DISEASE
     Dates: start: 20100901
  11. FLAGYL [Concomitant]
     Indication: CROHN'S DISEASE
     Dates: start: 20100701
  12. PROTONIX [Concomitant]
     Indication: CROHN'S DISEASE
     Dosage: DAILY DOSE: 40 MG
  13. BUDESONIDE [Concomitant]
     Dosage: TOTAL DAILY DOSE : 9 MG
  14. CIPRO [Concomitant]
     Indication: CROHN'S DISEASE
     Dates: start: 20100701
  15. CIMZIA [Suspect]
     Route: 058
     Dates: start: 20110418
  16. PREDNISONE TAB [Concomitant]
     Indication: CROHN'S DISEASE
     Dates: start: 20061101
  17. OXYCODONE HCL [Concomitant]
     Dosage: 15 MG, Q6 HRS, AS NECESSARY
  18. DILAUDID [Concomitant]
     Route: 048
  19. METHOTREXATE [Concomitant]
     Route: 058
  20. FLAGYL [Concomitant]
  21. DOCUSATE [Concomitant]
  22. OXYCODONE HCL [Concomitant]
     Indication: PAIN
     Dosage: 5 MG ,AS NECESSARY
     Route: 048
  23. OXYCODONE HCL [Concomitant]
     Dosage: 20 MG Q4, AS NECESSARY

REACTIONS (1)
  - PERIRECTAL ABSCESS [None]
